FAERS Safety Report 20246816 (Version 1)
Quarter: 2021Q4

REPORT INFORMATION
  Report Type: Spontaneous
  Country: CA (occurrence: CA)
  Receive Date: 20211229
  Receipt Date: 20211229
  Transmission Date: 20220304
  Serious: Yes (Other)
  Sender: FDA-Public Use
  Company Number: CA-SA-SAC20211228000484

PATIENT
  Age: 73 Year
  Sex: Female

DRUGS (1)
  1. INSULIN GLARGINE [Suspect]
     Active Substance: INSULIN GLARGINE
     Dosage: DOSE: 80.0 UNITS 1 EVERY 1 DAYS
     Route: 058

REACTIONS (2)
  - Hypophagia [Unknown]
  - Hypoglycaemia [Unknown]
